FAERS Safety Report 21072772 (Version 2)
Quarter: 2022Q4

REPORT INFORMATION
  Report Type: Spontaneous
  Country: US (occurrence: US)
  Receive Date: 20220712
  Receipt Date: 20221122
  Transmission Date: 20230113
  Serious: Yes (Other)
  Sender: FDA-Public Use
  Company Number: US-JAZZ-2022-US-022931

PATIENT
  Age: 9 Year
  Sex: Female
  Weight: 17.7 kg

DRUGS (4)
  1. EPIDIOLEX [Suspect]
     Active Substance: CANNABIDIOL
     Indication: Epilepsy
     Dosage: 2ML IN MORNING
     Route: 048
  2. EPIDIOLEX [Suspect]
     Active Substance: CANNABIDIOL
     Dosage: 1.5ML IN NIGHT
     Route: 048
  3. SABRIL [Concomitant]
     Active Substance: VIGABATRIN
     Dosage: UNK
  4. SABRIL [Concomitant]
     Active Substance: VIGABATRIN
     Dosage: UNK

REACTIONS (2)
  - Seizure [Unknown]
  - Asthenia [Unknown]

NARRATIVE: CASE EVENT DATE: 20220704
